FAERS Safety Report 6460680-6 (Version None)
Quarter: 2009Q4

REPORT INFORMATION
  Report Type: 
  Country: None (occurrence: None)
  Receive Date: 20091125
  Receipt Date: 20091125
  Transmission Date: 20100525
  Serious: Yes (Hospitalization)
  Sender: FDA-Public Use
  Company Number: None

PATIENT
  Sex: Male

DRUGS (18)
  1. OXALIPLATIN [Suspect]
     Indication: OESOPHAGEAL CARCINOMA
     Dosage: 275 MG, 1 DAY, INTRAVENOUS
     Route: 042
     Dates: start: 20091029, end: 20091029
  2. CALCIPOTRIENE [Concomitant]
  3. SYNTHROID [Concomitant]
  4. SIMVASTATIN [Concomitant]
  5. HYDROCHLOROTHIAZIDE [Concomitant]
  6. EPIRUBICIN HYDROCHLORIDE (EPIRUBICIN) [Concomitant]
  7. ONDANSETRON, USP (ONDANSETRON) [Concomitant]
  8. DEXAMETHASONE TAB [Concomitant]
  9. (OMEPRAZOLE) [Concomitant]
  10. BENAZEPRIL HYDROCHLORIDE [Concomitant]
  11. (EUCERIN /01160201) [Concomitant]
  12. TRIAMCINOLONE [Concomitant]
  13. PROCHLORPERAZINE [Concomitant]
  14. XELODA [Concomitant]
  15. (MAGNESIUM) [Concomitant]
  16. SODIUM CHLORIDE [Concomitant]
  17. POTASSIUM CHLORIDE [Concomitant]
  18. MAGNESIUM [Concomitant]

REACTIONS (9)
  - APHASIA [None]
  - ASTHENIA [None]
  - COORDINATION ABNORMAL [None]
  - DYSPHAGIA [None]
  - DYSSTASIA [None]
  - FATIGUE [None]
  - HYPOAESTHESIA ORAL [None]
  - LARYNGOSPASM [None]
  - STRIDOR [None]
